FAERS Safety Report 5441812-5 (Version None)
Quarter: 2007Q3

REPORT INFORMATION
  Report Type: 
  Country: None (occurrence: None)
  Receive Date: 20070904
  Receipt Date: 20070827
  Transmission Date: 20080115
  Serious: Yes (Hospitalization)
  Sender: FDA-Public Use
  Company Number: FR-AMGEN-US241283

PATIENT
  Sex: Female

DRUGS (11)
  1. ENBREL [Suspect]
     Indication: RHEUMATOID ARTHRITIS
     Route: 058
     Dates: start: 20070515, end: 20070526
  2. METHOTREXATE [Suspect]
     Indication: RHEUMATOID ARTHRITIS
     Dosage: 7,5 MG TOTAL WEEKLY
     Route: 048
     Dates: start: 20070301, end: 20070522
  3. NEXIUM [Concomitant]
     Dosage: UNKNOWN
     Route: 065
  4. OROCAL VITAMIN D [Concomitant]
     Dosage: UNKNOWN
     Route: 065
  5. NEXEN [Concomitant]
     Dosage: UNKNOWN
     Route: 065
  6. IBANDRONIC ACID [Concomitant]
     Dosage: UNKNOWN
     Route: 065
  7. ACETAMINOPHEN [Concomitant]
     Dosage: UNKNOWN
     Route: 065
  8. STILNOX [Concomitant]
     Dosage: UNKNOWN
     Route: 065
  9. KARDEGIC [Concomitant]
     Dosage: UNKNOWN
     Route: 065
  10. FLECTOR [Concomitant]
     Dosage: UNKNOWN
     Route: 065
  11. DI-ANTALVIC [Concomitant]
     Dosage: UNKNOWN
     Route: 065

REACTIONS (8)
  - ANAPHYLACTIC REACTION [None]
  - CHEST PAIN [None]
  - CIRCULATORY COLLAPSE [None]
  - DYSPHONIA [None]
  - DYSPNOEA [None]
  - INJECTION SITE REACTION [None]
  - LEFT VENTRICULAR FAILURE [None]
  - LOCALISED OEDEMA [None]
